FAERS Safety Report 23704565 (Version 1)
Quarter: 2024Q2

REPORT INFORMATION
  Report Type: Spontaneous
  Country: US (occurrence: US)
  Receive Date: 20240404
  Receipt Date: 20240404
  Transmission Date: 20240716
  Serious: Yes (Hospitalization)
  Sender: FDA-Public Use
  Company Number: US-NOVOPROD-1198048

PATIENT
  Sex: Male

DRUGS (1)
  1. NOVOLIN R [Suspect]
     Active Substance: INSULIN HUMAN
     Indication: Type 2 diabetes mellitus
     Dosage: 10 UNITS
     Route: 058

REACTIONS (2)
  - Respiratory syncytial virus infection [Recovered/Resolved]
  - Liver disorder [Recovered/Resolved]
